FAERS Safety Report 22891279 (Version 2)
Quarter: 2023Q4

REPORT INFORMATION
  Report Type: Report from Study
  Country: US (occurrence: US)
  Receive Date: 20230901
  Receipt Date: 20231121
  Transmission Date: 20240110
  Serious: Yes (Other)
  Sender: FDA-Public Use
  Company Number: US-ABBVIE-5388753

PATIENT
  Age: 67 Year
  Sex: Female
  Weight: 87 kg

DRUGS (1)
  1. RINVOQ [Suspect]
     Active Substance: UPADACITINIB
     Indication: Product used for unknown indication
     Route: 048

REACTIONS (10)
  - Surgery [Recovered/Resolved]
  - Vitreous floaters [Unknown]
  - Astigmatism [Unknown]
  - Presbyopia [Unknown]
  - Dry eye [Unknown]
  - Vision blurred [Unknown]
  - Blood cholesterol increased [Unknown]
  - Hypothyroidism [Unknown]
  - Arthritis [Unknown]
  - Hypertension [Unknown]

NARRATIVE: CASE EVENT DATE: 20221031
